FAERS Safety Report 25256670 (Version 1)
Quarter: 2025Q2

REPORT INFORMATION
  Report Type: Spontaneous
  Country: PL (occurrence: PL)
  Receive Date: 20250430
  Receipt Date: 20250430
  Transmission Date: 20250717
  Serious: Yes (Hospitalization, Other)
  Sender: NOVARTIS
  Company Number: PL-002147023-NVSC2025PL067416

PATIENT
  Age: 60 Year
  Sex: Female

DRUGS (4)
  1. IMATINIB [Suspect]
     Active Substance: IMATINIB
     Indication: Chronic myeloid leukaemia
     Dosage: 400 MG, QD
     Route: 065
     Dates: start: 20221228
  2. IMATINIB [Suspect]
     Active Substance: IMATINIB
     Dosage: 400 MG, QD
     Route: 065
     Dates: start: 20230516, end: 20240711
  3. IMATINIB [Suspect]
     Active Substance: IMATINIB
     Route: 065
     Dates: start: 20230906, end: 20231005
  4. IMATINIB [Suspect]
     Active Substance: IMATINIB
     Dosage: 200 MG, QD
     Route: 065

REACTIONS (9)
  - Anaemia [Unknown]
  - Gastrointestinal stromal tumour [Unknown]
  - Staphylococcal infection [Unknown]
  - Gastritis erosive [Unknown]
  - Haematotoxicity [Unknown]
  - Faeces discoloured [Unknown]
  - Laboratory test abnormal [Unknown]
  - Varices oesophageal [Unknown]
  - Asthenia [Unknown]

NARRATIVE: CASE EVENT DATE: 20230207
